FAERS Safety Report 21006507 (Version 2)
Quarter: 2022Q3

REPORT INFORMATION
  Report Type: Report from Study
  Country: KR (occurrence: KR)
  Receive Date: 20220624
  Receipt Date: 20220706
  Transmission Date: 20221027
  Serious: Yes (Hospitalization, Other)
  Sender: FDA-Public Use
  Company Number: KR-EXELIXIS-XL18421039829

PATIENT

DRUGS (51)
  1. CABOZANTINIB [Suspect]
     Active Substance: CABOZANTINIB
     Indication: Renal cell carcinoma
     Dosage: 60 MG, QD
     Route: 048
     Dates: start: 20210406
  2. ATEZOLIZUMAB [Suspect]
     Active Substance: ATEZOLIZUMAB
     Indication: Renal cell carcinoma
     Dosage: UNK
  3. HARNAL [Concomitant]
     Active Substance: TAMSULOSIN HYDROCHLORIDE
     Indication: Urinary retention
     Dosage: 0.2 MG, QD
     Route: 048
     Dates: start: 20200203, end: 20210416
  4. HARNAL [Concomitant]
     Active Substance: TAMSULOSIN HYDROCHLORIDE
     Dosage: 0.2 MG, QD
     Route: 048
     Dates: start: 20210419, end: 20210430
  5. IOHEXOL [Concomitant]
     Active Substance: IOHEXOL
     Dosage: 200 ML, QD
     Route: 042
     Dates: start: 20210331, end: 20210331
  6. SPATAM [Concomitant]
     Indication: Nephropathy toxic
     Dosage: 1200 MG, BID
     Route: 042
     Dates: start: 20210417, end: 20210417
  7. SPATAM [Concomitant]
     Indication: Prophylaxis
  8. TAZOPERAN [Concomitant]
     Indication: Pyrexia
  9. LEVOMELS [Concomitant]
     Indication: Alanine aminotransferase increased
     Dosage: 500 MG, QD
     Route: 042
     Dates: start: 20210417, end: 20210417
  10. LEVOMELS [Concomitant]
     Indication: Aspartate aminotransferase increased
     Dosage: 500 MG, BID
     Route: 042
     Dates: start: 20210418, end: 20210425
  11. LEVOMELS [Concomitant]
     Dosage: 500 MG, QD
     Route: 042
     Dates: start: 20210426, end: 20210426
  12. MUCOMYST [Concomitant]
     Active Substance: ACETYLCYSTEINE
     Indication: Dyspnoea
     Dosage: 4 ML, QD
     Route: 055
     Dates: start: 20210418, end: 20210418
  13. MUCOMYST [Concomitant]
     Active Substance: ACETYLCYSTEINE
     Indication: Prophylaxis
  14. PARAMACET ER [Concomitant]
     Indication: Pain in extremity
     Dosage: 1 TABLET 2 IN 1 D
     Route: 048
     Dates: start: 20210413, end: 20210417
  15. IOPAMIDOL [Concomitant]
     Active Substance: IOPAMIDOL
     Dosage: 150 ML, QD
     Route: 042
     Dates: start: 20210417, end: 20210417
  16. Cynacten [Concomitant]
     Dosage: 250 UG, QD
     Route: 042
     Dates: start: 20210419, end: 20210419
  17. TANAMIN [Concomitant]
     Indication: Dizziness
     Dosage: 17.5 MG, QD
     Route: 042
     Dates: start: 20210418, end: 20210418
  18. VIMOVO [Concomitant]
     Active Substance: ESOMEPRAZOLE MAGNESIUM\NAPROXEN
     Indication: Pain in extremity
     Dosage: 1 TABLET 2 IN 1 D
     Route: 048
     Dates: start: 20210419, end: 20210420
  19. AMBROXOL HYDROCHLORIDE [Concomitant]
     Active Substance: AMBROXOL HYDROCHLORIDE
     Indication: Dyspnoea
     Dosage: 15 MG, QD
     Route: 042
     Dates: start: 20210418, end: 20210418
  20. AMBROXOL HYDROCHLORIDE [Concomitant]
     Active Substance: AMBROXOL HYDROCHLORIDE
     Indication: Prophylaxis
  21. FURTMAN [Concomitant]
     Dosage: 1 ML, QD
     Route: 042
     Dates: start: 20210418, end: 20210418
  22. CYANOCOBALAMIN\PYRIDOXINE HYDROCHLORIDE\THIAMINE [Concomitant]
     Active Substance: CYANOCOBALAMIN\PYRIDOXINE HYDROCHLORIDE\THIAMINE
     Indication: Neuralgia
  23. CEFTRIAXONE SODIUM [Concomitant]
     Active Substance: CEFTRIAXONE SODIUM
  24. ZITHROMAX [Concomitant]
     Active Substance: AZITHROMYCIN DIHYDRATE
  25. PROFA [Concomitant]
  26. PROPACETAMOL HYDROCHLORIDE [Concomitant]
     Active Substance: PROPACETAMOL HYDROCHLORIDE
  27. REBAMIPIDE [Concomitant]
     Active Substance: REBAMIPIDE
     Indication: Gastritis
     Dosage: 100 MG, TID
     Route: 048
     Dates: start: 20210420
  28. REBAMIPIDE [Concomitant]
     Active Substance: REBAMIPIDE
     Indication: Prophylaxis
  29. HEPARIN SODIUM [Concomitant]
     Active Substance: HEPARIN SODIUM
     Dosage: 10 ML, QD
     Route: 042
     Dates: start: 20210426, end: 20210426
  30. BEAROBAN [Concomitant]
     Indication: Stomatitis
     Dosage: 10 MG, PRN
     Route: 061
     Dates: start: 20210424
  31. CAROL-F [Concomitant]
     Indication: Headache
     Dosage: 2 {DF}, TID
     Route: 048
     Dates: start: 20210420, end: 20210423
  32. CAROL-F [Concomitant]
     Dosage: 2 {DF}, BID
     Route: 048
     Dates: start: 20210424, end: 20210424
  33. CAROL-F [Concomitant]
     Dosage: 1 {DF}, BID
     Route: 048
     Dates: start: 20210425, end: 20210428
  34. DICLOFENAC DEANOL [Concomitant]
     Active Substance: DICLOFENAC DEANOL
     Indication: Headache
     Dosage: 90 MG, PRN
     Route: 042
     Dates: start: 20210419, end: 20210421
  35. EBADRINE SR [Concomitant]
     Indication: Rhinorrhoea
     Dosage: 1 CAPSULE 1 IN 1 D
     Route: 048
     Dates: start: 20210420, end: 20210422
  36. FOTAGEL [Concomitant]
     Indication: Diarrhoea
     Dosage: 20 ML, QD
     Route: 048
     Dates: start: 20210421, end: 20210421
  37. G CELL PLUS [Concomitant]
     Indication: Alanine aminotransferase increased
     Dosage: 1 CAPSULE  3 IN 1 D
     Route: 048
     Dates: start: 20210426
  38. G CELL PLUS [Concomitant]
     Indication: Aspartate aminotransferase increased
  39. LASIX [Concomitant]
     Active Substance: FUROSEMIDE
     Indication: Oedema
     Dosage: 20 MG, QD
     Route: 042
     Dates: start: 20210421, end: 20210421
  40. LASIX [Concomitant]
     Active Substance: FUROSEMIDE
     Indication: Prophylaxis
  41. MENIACE [Concomitant]
     Indication: Dizziness
     Dosage: 6 MG, BID
     Route: 048
     Dates: start: 20210422, end: 20210428
  42. PHOSTEN [Concomitant]
     Indication: Hypophosphataemia
     Dosage: 40 ML, BID
     Route: 042
     Dates: start: 20210421, end: 20210422
  43. PROHANCE [Concomitant]
     Active Substance: GADOTERIDOL
     Dosage: 17 ML, QD
     Route: 042
     Dates: start: 20210421, end: 20210421
  44. PEFIDEX [Concomitant]
  45. PHENIRAMINE [Concomitant]
     Active Substance: PHENIRAMINE
     Dosage: 4 MG, QD
     Route: 042
     Dates: start: 20210421, end: 20210421
  46. IPRATROPIUM BROMIDE [Concomitant]
     Active Substance: IPRATROPIUM BROMIDE
     Dosage: 500 UG, QD
     Route: 055
     Dates: start: 20210418, end: 20210418
  47. OMAPONE [Concomitant]
     Dosage: 724 ML, QD
     Route: 042
     Dates: start: 20210418, end: 20210420
  48. OMAPONE [Concomitant]
     Dosage: 724 ML, QD
     Route: 042
     Dates: start: 20210422, end: 20210422
  49. Bonaring a [Concomitant]
     Dosage: 50 MG, TID
     Route: 048
     Dates: start: 20210421, end: 20210421
  50. Bonaring a [Concomitant]
     Dosage: 50 MG, TID
     Route: 048
     Dates: start: 20210422, end: 20210422
  51. Bonaring a [Concomitant]
     Dosage: 25 MG, TID
     Route: 048
     Dates: start: 20210422, end: 20210428

REACTIONS (2)
  - Platelet count decreased [Recovered/Resolved]
  - Pyrexia [Recovered/Resolved]

NARRATIVE: CASE EVENT DATE: 20210416
